FAERS Safety Report 9155597 (Version 3)
Quarter: 2014Q1

REPORT INFORMATION
  Report Type: Spontaneous
  Country: SE (occurrence: SE)
  Receive Date: 20130311
  Receipt Date: 20140331
  Transmission Date: 20141002
  Serious: Yes (Other)
  Sender: FDA-Public Use
  Company Number: SE-GLAXOSMITHKLINE-B0872205A

PATIENT
  Age: 4 Year
  Sex: Male
  Weight: 18.5 kg

DRUGS (4)
  1. FLUTIDE [Suspect]
     Indication: PSEUDOCROUP
     Dosage: 4PUFF AS REQUIRED
     Route: 055
  2. NEZERIL [Concomitant]
  3. DESENTOL [Concomitant]
     Indication: PSEUDOCROUP
     Dosage: 2.5ML AS REQUIRED
  4. COCILLANA ETYFIN [Concomitant]
     Dosage: 2ML AS REQUIRED

REACTIONS (2)
  - Haemorrhage [Recovered/Resolved]
  - Off label use [Unknown]
